FAERS Safety Report 5286070-X (Version None)
Quarter: 2007Q2

REPORT INFORMATION
  Report Type: 
  Country: None (occurrence: None)
  Receive Date: 20070404
  Receipt Date: 20070322
  Transmission Date: 20071010
  Serious: Yes (Other)
  Sender: FDA-Public Use
  Company Number: PHBS2007JP04450

PATIENT
  Age: 70 Year
  Sex: Male

DRUGS (2)
  1. LUDIOMIL [Suspect]
     Indication: DEPRESSION
     Dosage: 10 MG/D
     Route: 048
     Dates: start: 20070101
  2. LENDORMIN [Concomitant]

REACTIONS (1)
  - RHABDOMYOLYSIS [None]
